FAERS Safety Report 4587188-7 (Version None)
Quarter: 2005Q1

REPORT INFORMATION
  Report Type: 
  Country: None (occurrence: None)
  Receive Date: 20050215
  Receipt Date: 20050203
  Transmission Date: 20050727
  Serious: Yes (Other)
  Sender: FDA-Public Use
  Company Number: HQWYE130504FEB05

PATIENT
  Sex: Male

DRUGS (1)
  1. ZOSYN [Suspect]
     Dosage: INTRAVENOUS
     Route: 042

REACTIONS (2)
  - BLOOD CREATININE INCREASED [None]
  - INTERSTITIAL LUNG DISEASE [None]
